FAERS Safety Report 23653594 (Version 3)
Quarter: 2025Q4

REPORT INFORMATION
  Report Type: Report from Study
  Country: CA (occurrence: CA)
  Receive Date: 20240320
  Receipt Date: 20251219
  Transmission Date: 20260119
  Serious: Yes (Other)
  Sender: ABBVIE
  Company Number: CA-ABBVIE-5683834

PATIENT
  Age: 65 Year
  Sex: Male

DRUGS (2)
  1. RINVOQ [Suspect]
     Active Substance: UPADACITINIB
     Indication: Rheumatoid arthritis
     Dosage: FORM STRENGTH: 15 MILLIGRAM
     Route: 048
     Dates: start: 20210514, end: 20251208
  2. RINVOQ [Suspect]
     Active Substance: UPADACITINIB
     Indication: Rheumatoid arthritis
     Dosage: FORM STRENGTH: 15MILLIGRAN
     Route: 048

REACTIONS (4)
  - Knee arthroplasty [Unknown]
  - Lymphocyte count abnormal [Unknown]
  - Rheumatoid arthritis [Unknown]
  - Femoroacetabular impingement [Unknown]

NARRATIVE: CASE EVENT DATE: 20240304
